FAERS Safety Report 7562657-6 (Version None)
Quarter: 2011Q2

REPORT INFORMATION
  Report Type: 
  Country: None (occurrence: None)
  Receive Date: 20110621
  Receipt Date: 20110621
  Transmission Date: 20111010
  Serious: Yes (Other)
  Sender: FDA-Public Use
  Company Number: None

PATIENT
  Age: 35 Year
  Sex: Male
  Weight: 86.1834 kg

DRUGS (1)
  1. DEXILANT [Suspect]
     Indication: GASTROOESOPHAGEAL REFLUX DISEASE
     Dosage: 60 MG 1X PER DAY PO
     Route: 048
     Dates: start: 20110101, end: 20110616

REACTIONS (2)
  - DISTURBANCE IN ATTENTION [None]
  - DIZZINESS [None]
